FAERS Safety Report 9422439 (Version 1)
Quarter: 2013Q3

REPORT INFORMATION
  Report Type: Spontaneous
  Country: US (occurrence: None)
  Receive Date: 20130725
  Receipt Date: 20130725
  Transmission Date: 20140515
  Serious: Yes (Death)
  Sender: FDA-Public Use
  Company Number: None

PATIENT
  Sex: Female

DRUGS (2)
  1. ALKERAN [Suspect]
     Dosage: 16 MG DAILY PO
     Route: 048
  2. ALKERAN [Suspect]
     Dosage: 16 MG DAILY PO
     Route: 048

REACTIONS (1)
  - Death [None]
